FAERS Safety Report 18638858 (Version 1)
Quarter: 2020Q4

REPORT INFORMATION
  Report Type: Spontaneous
  Country: US (occurrence: US)
  Receive Date: 20201218
  Receipt Date: 20201218
  Transmission Date: 20210114
  Serious: No
  Sender: FDA-Public Use
  Company Number: US-ROCHE-2658747

PATIENT

DRUGS (2)
  1. GAZYVA [Suspect]
     Active Substance: OBINUTUZUMAB
     Route: 042
  2. GAZYVA [Suspect]
     Active Substance: OBINUTUZUMAB
     Indication: PRODUCT USED FOR UNKNOWN INDICATION
     Route: 042

REACTIONS (7)
  - Oedema peripheral [Unknown]
  - Rhinorrhoea [Unknown]
  - Influenza [Unknown]
  - Malaise [Unknown]
  - Sleep disorder [Unknown]
  - Thrombocytopenia [Unknown]
  - Cough [Unknown]
